FAERS Safety Report 8143440-X (Version None)
Quarter: 2012Q1

REPORT INFORMATION
  Report Type: 
  Country: None (occurrence: None)
  Receive Date: 20120217
  Receipt Date: 20120209
  Transmission Date: 20120608
  Serious: Yes (Hospitalization)
  Sender: FDA-Public Use
  Company Number: BR-US-EMD SERONO, INC.-7112935

PATIENT
  Sex: Female

DRUGS (5)
  1. REBIF [Suspect]
     Indication: RELAPSING-REMITTING MULTIPLE SCLEROSIS
     Dates: start: 20110629, end: 20111130
  2. REBIF [Suspect]
     Dates: start: 20111130
  3. BUPROVIL (IBUPROFEN) [Concomitant]
     Indication: PRODUCT USED FOR UNKNOWN INDICATION
  4. CLONAZEPAM [Concomitant]
     Indication: SLEEP DISORDER
  5. CITALOPRAM HYDROBROMIDE [Concomitant]
     Indication: PRODUCT USED FOR UNKNOWN INDICATION

REACTIONS (8)
  - OEDEMA PERIPHERAL [None]
  - MALAISE [None]
  - PAIN [None]
  - PYREXIA [None]
  - INJECTION SITE PAIN [None]
  - MYALGIA [None]
  - SENSATION OF HEAVINESS [None]
  - ORAL HERPES [None]
